FAERS Safety Report 4469726-8 (Version None)
Quarter: 2004Q4

REPORT INFORMATION
  Report Type: 
  Country: None (occurrence: None)
  Receive Date: 20041008
  Receipt Date: 20040929
  Transmission Date: 20050328
  Serious: Yes (Death)
  Sender: FDA-Public Use
  Company Number: US-JNJFOC-20040910176

PATIENT
  Sex: Male

DRUGS (15)
  1. DURAGESIC [Suspect]
     Indication: CANCER PAIN
     Route: 062
     Dates: end: 20040914
  2. METHADONE HCL [Concomitant]
     Route: 049
  3. DUONEB [Concomitant]
  4. DUONEB [Concomitant]
  5. MEGACE [Concomitant]
     Route: 049
  6. LACTULOSE [Concomitant]
     Route: 049
  7. COLACE [Concomitant]
     Route: 049
  8. BISACODYL [Concomitant]
     Route: 049
  9. LASIX [Concomitant]
     Route: 049
  10. ZAROXOLYN [Concomitant]
     Route: 049
  11. DIFLUCAN [Concomitant]
     Route: 049
  12. ATIVAN [Concomitant]
     Route: 049
  13. ATROPINE [Concomitant]
     Route: 049
  14. ZITHROMAX [Concomitant]
     Route: 049
  15. DEXAMETASON [Concomitant]
     Route: 049

REACTIONS (1)
  - MALIGNANT NEOPLASM PROGRESSION [None]
